FAERS Safety Report 26185273 (Version 1)
Quarter: 2025Q4

REPORT INFORMATION
  Report Type: Report from Study
  Country: CA (occurrence: CA)
  Receive Date: 20251222
  Receipt Date: 20251222
  Transmission Date: 20260117
  Serious: Yes (Other)
  Sender: CELLTRION
  Company Number: CA-CELLTRION INC.-2025CA045517

PATIENT

DRUGS (2)
  1. OMALIZUMAB [Suspect]
     Active Substance: OMALIZUMAB
     Indication: Chronic spontaneous urticaria
     Dosage: MAINTENANCE - 300 MG - EVERY 4 WEEKS
     Route: 058
     Dates: start: 20251114
  2. OMALIZUMAB [Suspect]
     Active Substance: OMALIZUMAB
     Dosage: MAINTENANCE - 300 MG - EVERY 4 WEEKS
     Route: 058
     Dates: start: 20251212

REACTIONS (4)
  - Influenza like illness [Recovered/Resolved]
  - Rash vesicular [Recovering/Resolving]
  - Chronic spontaneous urticaria [Recovering/Resolving]
  - Insomnia [Recovering/Resolving]

NARRATIVE: CASE EVENT DATE: 20251114
